FAERS Safety Report 12254721 (Version 4)
Quarter: 2017Q4

REPORT INFORMATION
  Report Type: Report from Study
  Country: US (occurrence: US)
  Receive Date: 20160411
  Receipt Date: 20171220
  Transmission Date: 20180320
  Serious: Yes (Hospitalization)
  Sender: FDA-Public Use
  Company Number: US-MALLINCKRODT-T201600853

PATIENT
  Age: 62 Year
  Sex: Female

DRUGS (6)
  1. REPOSITORY CORTICOTROPIN INJECTION [Suspect]
     Active Substance: CORTICOTROPIN
     Dosage: 80 UNITS / 1 ML 2 TIMES PER WEEK (MONDAY/THURSDAY)
     Route: 058
     Dates: start: 20161102
  2. REPOSITORY CORTICOTROPIN INJECTION [Suspect]
     Active Substance: CORTICOTROPIN
     Indication: DERMATOMYOSITIS
     Dosage: UNKNOWN DOSE/FREQUENCY
     Route: 065
     Dates: start: 201603, end: 201603
  3. METHOTREXATE. [Suspect]
     Active Substance: METHOTREXATE
     Indication: PRODUCT USED FOR UNKNOWN INDICATION
     Dosage: UNKNOWN DOSE/FREQUENCY (SATURDAY)
     Route: 065
  4. PREDNISONE. [Concomitant]
     Active Substance: PREDNISONE
     Indication: PRODUCT USED FOR UNKNOWN INDICATION
     Dosage: WEANING
  5. REPOSITORY CORTICOTROPIN INJECTION [Suspect]
     Active Substance: CORTICOTROPIN
     Dosage: 80 UNITS TWICE WKLY (MONDAY/THURSDAY)
     Route: 058
     Dates: start: 20160328
  6. LASIX [Concomitant]
     Active Substance: FUROSEMIDE
     Indication: PRODUCT USED FOR UNKNOWN INDICATION
     Dosage: UNK

REACTIONS (8)
  - Drug hypersensitivity [Not Recovered/Not Resolved]
  - Acute respiratory failure [Recovered/Resolved]
  - Staphylococcal infection [Recovering/Resolving]
  - Hypopnoea [Not Recovered/Not Resolved]
  - Pneumonia [Recovering/Resolving]
  - Respiratory disorder [Unknown]
  - Viral infection [Unknown]
  - Somnolence [Unknown]

NARRATIVE: CASE EVENT DATE: 20160304
